FAERS Safety Report 13410795 (Version 2)
Quarter: 2017Q4

REPORT INFORMATION
  Report Type: Spontaneous
  Country: US (occurrence: US)
  Receive Date: 20170406
  Receipt Date: 20171102
  Transmission Date: 20180320
  Serious: Yes (Other)
  Sender: FDA-Public Use
  Company Number: US-JNJFOC-20151100530

PATIENT
  Sex: Male

DRUGS (14)
  1. RISPERDAL M-TAB [Suspect]
     Active Substance: RISPERIDONE
     Indication: ABNORMAL BEHAVIOUR
     Dosage: 0.5 MG TO 2 MG
     Route: 048
     Dates: start: 20061113, end: 20090529
  2. RISPERDAL [Suspect]
     Active Substance: RISPERIDONE
     Indication: PRODUCT USED FOR UNKNOWN INDICATION
     Route: 048
     Dates: start: 20061113, end: 20090629
  3. RISPERIDONE M-TAB [Suspect]
     Active Substance: RISPERIDONE
     Indication: ABNORMAL BEHAVIOUR
     Route: 048
     Dates: start: 20090623, end: 20110421
  4. RISPERIDONE M-TAB [Suspect]
     Active Substance: RISPERIDONE
     Indication: CONDUCT DISORDER
     Route: 048
     Dates: start: 20090623, end: 20110421
  5. INVEGA [Suspect]
     Active Substance: PALIPERIDONE
     Indication: PRODUCT USED FOR UNKNOWN INDICATION
     Route: 048
  6. RISPERIDONE. [Suspect]
     Active Substance: RISPERIDONE
     Indication: PRODUCT USED FOR UNKNOWN INDICATION
     Route: 048
     Dates: start: 20061113, end: 20110421
  7. RISPERDAL M-TAB [Suspect]
     Active Substance: RISPERIDONE
     Indication: AUDITORY DISORDER
     Dosage: 0.5 MG TO 2 MG
     Route: 048
     Dates: start: 20061113, end: 20090529
  8. RISPERDAL M-TAB [Suspect]
     Active Substance: RISPERIDONE
     Indication: CONDUCT DISORDER
     Dosage: 0.5 MG TO 2 MG
     Route: 048
     Dates: start: 20061113, end: 20090529
  9. RISPERDAL [Suspect]
     Active Substance: RISPERIDONE
     Indication: PRODUCT USED FOR UNKNOWN INDICATION
     Route: 048
     Dates: end: 20110521
  10. RISPERDAL [Suspect]
     Active Substance: RISPERIDONE
     Indication: PRODUCT USED FOR UNKNOWN INDICATION
     Route: 048
     Dates: start: 20090623, end: 20110421
  11. RISPERDAL M-TAB [Suspect]
     Active Substance: RISPERIDONE
     Indication: ABNORMAL BEHAVIOUR
     Route: 048
  12. RISPERDAL M-TAB [Suspect]
     Active Substance: RISPERIDONE
     Indication: AUDITORY DISORDER
     Route: 048
  13. RISPERDAL M-TAB [Suspect]
     Active Substance: RISPERIDONE
     Indication: CONDUCT DISORDER
     Route: 048
  14. RISPERIDONE M-TAB [Suspect]
     Active Substance: RISPERIDONE
     Indication: AUDITORY DISORDER
     Route: 048
     Dates: start: 20090623, end: 20110421

REACTIONS (3)
  - Obesity [Unknown]
  - Gynaecomastia [Unknown]
  - Emotional disorder [Unknown]
